FAERS Safety Report 19655343 (Version 5)
Quarter: 2021Q4

REPORT INFORMATION
  Report Type: Report from Study
  Country: US (occurrence: US)
  Receive Date: 20210803
  Receipt Date: 20211213
  Transmission Date: 20220303
  Serious: Yes (Disabling, Other)
  Sender: FDA-Public Use
  Company Number: US-ABBVIE-21K-163-4021116-00

PATIENT
  Sex: Female
  Weight: 103.06 kg

DRUGS (16)
  1. HUMIRA [Suspect]
     Active Substance: ADALIMUMAB
     Indication: Colitis ulcerative
     Route: 058
     Dates: start: 2019, end: 202010
  2. HUMIRA [Suspect]
     Active Substance: ADALIMUMAB
     Indication: Rheumatoid arthritis
     Route: 058
     Dates: start: 2020, end: 202011
  3. HUMIRA [Suspect]
     Active Substance: ADALIMUMAB
     Indication: Psoriasis
  4. HUMIRA [Suspect]
     Active Substance: ADALIMUMAB
     Indication: Colitis ulcerative
     Dosage: DAY 1
     Route: 058
     Dates: start: 20210728, end: 20210728
  5. HUMIRA [Suspect]
     Active Substance: ADALIMUMAB
     Indication: Rheumatoid arthritis
     Dosage: DAY 15
     Route: 058
     Dates: start: 20210811, end: 20210811
  6. HUMIRA [Suspect]
     Active Substance: ADALIMUMAB
     Indication: Psoriasis
  7. HUMIRA [Suspect]
     Active Substance: ADALIMUMAB
     Indication: Colitis ulcerative
     Route: 058
     Dates: start: 20210825
  8. HUMIRA [Suspect]
     Active Substance: ADALIMUMAB
     Indication: Rheumatoid arthritis
     Route: 058
     Dates: start: 20210728
  9. HUMIRA [Suspect]
     Active Substance: ADALIMUMAB
     Indication: Psoriasis
     Route: 058
     Dates: start: 20211023, end: 202110
  10. PANTOPRAZOLE [Concomitant]
     Active Substance: PANTOPRAZOLE
     Indication: Gastrooesophageal reflux disease
  11. SEROQUEL [Concomitant]
     Active Substance: QUETIAPINE FUMARATE
     Indication: Product used for unknown indication
  12. ZOFRAN [Concomitant]
     Active Substance: ONDANSETRON HYDROCHLORIDE
     Indication: Nausea
  13. CANASA [Concomitant]
     Active Substance: MESALAMINE
     Indication: Colitis ulcerative
  14. TIZANIDINE [Concomitant]
     Active Substance: TIZANIDINE
     Indication: Product used for unknown indication
  15. METOPROLOL [Concomitant]
     Active Substance: METOPROLOL
     Indication: Product used for unknown indication
  16. CARAFATE [Concomitant]
     Active Substance: SUCRALFATE
     Indication: Product used for unknown indication

REACTIONS (39)
  - Cardiac disorder [Not Recovered/Not Resolved]
  - Spinal operation [Unknown]
  - Medical device implantation [Unknown]
  - Loss of personal independence in daily activities [Unknown]
  - Impaired work ability [Unknown]
  - Frequent bowel movements [Unknown]
  - Mucous stools [Unknown]
  - Decreased appetite [Unknown]
  - Gastrointestinal motility disorder [Unknown]
  - General symptom [Unknown]
  - Constipation [Recovering/Resolving]
  - Sluggishness [Unknown]
  - Asthenia [Unknown]
  - Insomnia [Unknown]
  - Depressed mood [Unknown]
  - Haematochezia [Unknown]
  - Flatulence [Unknown]
  - Abdominal distension [Unknown]
  - Abdominal pain [Unknown]
  - Proctalgia [Unknown]
  - Muscle spasms [Unknown]
  - Nausea [Recovering/Resolving]
  - Diarrhoea [Unknown]
  - Drug ineffective [Unknown]
  - Pain [Unknown]
  - Haemorrhage [Unknown]
  - Pyrexia [Unknown]
  - Tooth disorder [Unknown]
  - Fatigue [Unknown]
  - Arthralgia [Not Recovered/Not Resolved]
  - Dyschezia [Unknown]
  - Proctitis [Unknown]
  - Rectal haemorrhage [Not Recovered/Not Resolved]
  - Rheumatoid arthritis [Unknown]
  - Haemorrhoids [Unknown]
  - Haemorrhage [Unknown]
  - Anal pruritus [Unknown]
  - Fatigue [Unknown]
  - Gastrointestinal disorder [Unknown]

NARRATIVE: CASE EVENT DATE: 20200101
